FAERS Safety Report 10729509 (Version 1)
Quarter: 2015Q1

REPORT INFORMATION
  Report Type: Spontaneous
  Country: US (occurrence: None)
  Receive Date: 20150121
  Receipt Date: 20150121
  Transmission Date: 20150721
  Serious: Yes (Hospitalization)
  Sender: FDA-Public Use
  Company Number: None

PATIENT
  Age: 76 Year
  Sex: Male

DRUGS (3)
  1. EXJADE [Suspect]
     Active Substance: DEFERASIROX
     Indication: MYELODYSPLASTIC SYNDROME
     Route: 048
     Dates: start: 20140911
  2. AMLODOPINE [Concomitant]
  3. EXJADE [Suspect]
     Active Substance: DEFERASIROX
     Indication: HEREDITARY HAEMOCHROMATOSIS
     Route: 048
     Dates: start: 20140911

REACTIONS (3)
  - Nausea [None]
  - Constipation [None]
  - Chest pain [None]

NARRATIVE: CASE EVENT DATE: 20141223
